FAERS Safety Report 13512551 (Version 1)
Quarter: 2017Q2

REPORT INFORMATION
  Report Type: Spontaneous
  Country: US (occurrence: US)
  Receive Date: 20170504
  Receipt Date: 20170504
  Transmission Date: 20170830
  Serious: Yes (Death, Hospitalization, Other)
  Sender: FDA-Public Use
  Company Number: US-AMGEN-USASP2017064844

PATIENT
  Age: 61 Year
  Sex: Male

DRUGS (2)
  1. KEYTRUDA [Concomitant]
     Active Substance: PEMBROLIZUMAB
     Dosage: UNK
  2. XGEVA [Suspect]
     Active Substance: DENOSUMAB
     Indication: METASTASES TO BONE
     Dosage: UNK
     Route: 065
     Dates: end: 20170322

REACTIONS (10)
  - Thrombosis [Unknown]
  - Fall [Unknown]
  - Abasia [Unknown]
  - Asthenia [Unknown]
  - Micturition urgency [Unknown]
  - Condition aggravated [Not Recovered/Not Resolved]
  - Extra dose administered [Unknown]
  - Malignant melanoma [Fatal]
  - Pollakiuria [Unknown]
  - Cerebrovascular accident [Unknown]

NARRATIVE: CASE EVENT DATE: 20150806
